FAERS Safety Report 8639980 (Version 2)
Quarter: 2013Q2

REPORT INFORMATION
  Report Type: Report from Study
  Country: US (occurrence: US)
  Receive Date: 20120628
  Receipt Date: 20130627
  Transmission Date: 20140414
  Serious: Yes (Other)
  Sender: FDA-Public Use
  Company Number: US-MYLANLABS-2011S1016636

PATIENT
  Age: 26 Year
  Sex: Male

DRUGS (4)
  1. CLOZAPINE TABLETS [Suspect]
     Route: 048
     Dates: end: 20110819
  2. CLOZAPINE TABLETS [Suspect]
     Route: 048
     Dates: start: 20110823, end: 201203
  3. CLOZAPINE TABLETS [Suspect]
     Route: 048
     Dates: end: 20110819
  4. CLOZAPINE TABLETS [Suspect]
     Route: 048
     Dates: start: 20110823

REACTIONS (2)
  - Granulocytopenia [Not Recovered/Not Resolved]
  - Leukopenia [Recovered/Resolved]
